FAERS Safety Report 7932791-7 (Version None)
Quarter: 2011Q4

REPORT INFORMATION
  Report Type: 
  Country: None (occurrence: None)
  Receive Date: 20111122
  Receipt Date: 20110906
  Transmission Date: 20120403
  Serious: No
  Sender: FDA-Public Use
  Company Number: US-MYLANLABS-2011S1018745

PATIENT
  Age: 75 Year
  Sex: Male

DRUGS (1)
  1. BACLOFEN [Suspect]
     Indication: MUSCLE RELAXANT THERAPY
     Route: 048
     Dates: start: 20110801

REACTIONS (4)
  - HEART RATE INCREASED [None]
  - BALANCE DISORDER [None]
  - COORDINATION ABNORMAL [None]
  - BRADYPHRENIA [None]
